FAERS Safety Report 4333872-X (Version None)
Quarter: 2004Q2

REPORT INFORMATION
  Report Type: 
  Country: None (occurrence: None)
  Receive Date: 20040407
  Receipt Date: 20040402
  Transmission Date: 20050107
  Serious: Yes (Other)
  Sender: FDA-Public Use
  Company Number: 200413800GDDC

PATIENT
  Age: 6 Year
  Sex: Male

DRUGS (2)
  1. MINIRIN [Suspect]
     Indication: ENURESIS
     Route: 045
     Dates: start: 20020924, end: 20021013
  2. OXYBUTYNIN [Concomitant]
     Route: 048

REACTIONS (5)
  - DISORIENTATION [None]
  - DRUG TOXICITY [None]
  - HYPONATRAEMIA [None]
  - SOMNOLENCE [None]
  - VOMITING [None]
